FAERS Safety Report 21345739 (Version 2)
Quarter: 2022Q4

REPORT INFORMATION
  Report Type: Report from Study
  Country: CA (occurrence: CA)
  Receive Date: 20220916
  Receipt Date: 20221206
  Transmission Date: 20230113
  Serious: Yes (Other)
  Sender: FDA-Public Use
  Company Number: CA-PFIZER INC-202201160829

PATIENT
  Age: 38 Year
  Sex: Female

DRUGS (11)
  1. INFLIXIMAB [Suspect]
     Active Substance: INFLIXIMAB
     Route: 065
  2. METHOTREXATE SODIUM [Suspect]
     Active Substance: METHOTREXATE SODIUM
     Dosage: 17.5 MG, WEEKLY
     Route: 065
  3. LEFLUNOMIDE [Suspect]
     Active Substance: LEFLUNOMIDE
     Dosage: 20 MG, 1X/DAY
     Route: 065
  4. CELEBREX [Concomitant]
     Active Substance: CELECOXIB
     Route: 048
  5. DESOXIMETASONE [Concomitant]
     Active Substance: DESOXIMETASONE
     Route: 065
  6. HUMIRA [Concomitant]
     Active Substance: ADALIMUMAB
     Dosage: UNK
     Route: 065
  7. HYDROXYCHLOROQUINE [Concomitant]
     Active Substance: HYDROXYCHLOROQUINE
     Dosage: UNK, 1X/DAY
     Route: 065
  8. IBUPROFEN [Concomitant]
     Active Substance: IBUPROFEN
     Route: 048
  9. INFLIXIMAB [Concomitant]
     Active Substance: INFLIXIMAB
     Route: 065
  10. NAPROXEN [Concomitant]
     Active Substance: NAPROXEN
     Route: 048
  11. SULFASALAZINE [Concomitant]
     Active Substance: SULFASALAZINE
     Dosage: UNK, 2X/DAY
     Route: 065

REACTIONS (9)
  - Abdominal discomfort [Unknown]
  - C-reactive protein increased [Unknown]
  - Heart rate increased [Unknown]
  - Joint swelling [Unknown]
  - Loss of consciousness [Unknown]
  - Pain [Unknown]
  - Tooth infection [Unknown]
  - Treatment failure [Unknown]
  - Vomiting [Unknown]
